FAERS Safety Report 5220863-X (Version None)
Quarter: 2007Q1

REPORT INFORMATION
  Report Type: 
  Country: None (occurrence: None)
  Receive Date: 20070126
  Receipt Date: 20070124
  Transmission Date: 20070707
  Serious: Yes (Other)
  Sender: FDA-Public Use
  Company Number: US-GLAXOSMITHKLINE-A0631129A

PATIENT
  Age: 43 Year
  Sex: Female

DRUGS (8)
  1. ADVAIR DISKUS 100/50 [Suspect]
     Indication: ASTHMA
     Dosage: 1PUFF TWICE PER DAY
     Route: 055
     Dates: start: 20061205
  2. PULMICORT [Suspect]
     Indication: ASTHMA
     Dosage: 2PUFF TWICE PER DAY
     Route: 055
     Dates: start: 20070112, end: 20070123
  3. PRILOSEC [Concomitant]
  4. KLONOPIN [Concomitant]
  5. LEXAPRO [Concomitant]
  6. ZINC [Concomitant]
  7. ULTRAM [Concomitant]
  8. DECONGESTANT [Concomitant]

REACTIONS (14)
  - CHEST PAIN [None]
  - DISORIENTATION [None]
  - DRUG INEFFECTIVE [None]
  - EAR PAIN [None]
  - FACIAL PAIN [None]
  - HEADACHE [None]
  - MENINGITIS [None]
  - NASOPHARYNGITIS [None]
  - PHARYNGEAL OEDEMA [None]
  - RESPIRATORY TRACT INFECTION [None]
  - RHINORRHOEA [None]
  - THROAT TIGHTNESS [None]
  - VISION BLURRED [None]
  - VOMITING [None]
